FAERS Safety Report 7291976-6 (Version None)
Quarter: 2011Q1

REPORT INFORMATION
  Report Type: 
  Country: None (occurrence: None)
  Receive Date: 20110214
  Receipt Date: 20110202
  Transmission Date: 20110831
  Serious: Yes (Hospitalization, Other)
  Sender: FDA-Public Use
  Company Number: US-ELI_LILLY_AND_COMPANY-US201006007307

PATIENT
  Sex: Female
  Weight: 39.002 kg

DRUGS (3)
  1. FORTEO [Suspect]
     Indication: OSTEOPOROSIS
     Dosage: 20 UG, DAILY (1/D)
     Dates: start: 20090408, end: 20100501
  2. ACTONEL [Concomitant]
     Dosage: 35 MG, UNKNOWN
     Route: 065
     Dates: start: 20100916
  3. CALCIUM [Concomitant]

REACTIONS (2)
  - HIP FRACTURE [None]
  - FALL [None]
